FAERS Safety Report 4429819-8 (Version None)
Quarter: 2004Q3

REPORT INFORMATION
  Report Type: 
  Country: None (occurrence: None)
  Receive Date: 20040816
  Receipt Date: 20040731
  Transmission Date: 20050211
  Serious: Yes (Disabling)
  Sender: FDA-Public Use
  Company Number: 2004028787

PATIENT
  Age: 60 Year
  Sex: Male

DRUGS (5)
  1. LIPITOR [Suspect]
     Indication: BLOOD CHOLESTEROL
     Dosage: 20 MG (20 MG, 1 IN 1 D), ORAL
     Route: 048
     Dates: start: 19990101
  2. NICOTINIC ACID [Suspect]
     Indication: BLOOD CHOLESTEROL
     Dosage: 1500 MG
     Dates: start: 20010101, end: 20020101
  3. METOPROLOL TARTRATE [Concomitant]
  4. DYAZIDE [Concomitant]
  5. METOPROLOL TARTRATE [Concomitant]

REACTIONS (2)
  - AMYOTROPHIC LATERAL SCLEROSIS [None]
  - DRUG INTERACTION [None]
